FAERS Safety Report 6212817-1 (Version None)
Quarter: 2009Q2

REPORT INFORMATION
  Report Type: 
  Country: None (occurrence: None)
  Receive Date: 20090603
  Receipt Date: 20090506
  Transmission Date: 20091009
  Serious: Yes (Other)
  Sender: FDA-Public Use
  Company Number: US-BAYER-200917707NA

PATIENT
  Age: 55 Year
  Sex: Male

DRUGS (6)
  1. MAGNEVIST [Suspect]
     Indication: NUCLEAR MAGNETIC RESONANCE IMAGING
     Dates: start: 20060814, end: 20060814
  2. MAGNEVIST [Suspect]
     Dates: start: 20070104, end: 20070104
  3. OMNISCAN [Suspect]
     Indication: NUCLEAR MAGNETIC RESONANCE IMAGING
     Dates: start: 20041203, end: 20041203
  4. OPTIMARK [Suspect]
     Indication: NUCLEAR MAGNETIC RESONANCE IMAGING
  5. MULTIHANCE [Suspect]
     Indication: NUCLEAR MAGNETIC RESONANCE IMAGING
  6. PROHANCE [Suspect]
     Indication: NUCLEAR MAGNETIC RESONANCE IMAGING

REACTIONS (15)
  - ANHEDONIA [None]
  - ANXIETY [None]
  - DEFORMITY [None]
  - EMOTIONAL DISTRESS [None]
  - ERYTHEMA [None]
  - FIBROSIS [None]
  - GENERAL PHYSICAL HEALTH DETERIORATION [None]
  - JOINT STIFFNESS [None]
  - NEPHROGENIC SYSTEMIC FIBROSIS [None]
  - OEDEMA PERIPHERAL [None]
  - PAIN [None]
  - PAIN OF SKIN [None]
  - SCAR [None]
  - SKIN EXFOLIATION [None]
  - SKIN FIBROSIS [None]
